FAERS Safety Report 5959745-4 (Version None)
Quarter: 2008Q4

REPORT INFORMATION
  Report Type: 
  Country: None (occurrence: None)
  Receive Date: 20081119
  Receipt Date: 20081119
  Transmission Date: 20090506
  Serious: Yes (Life-Threatening)
  Sender: FDA-Public Use
  Company Number: None

PATIENT
  Sex: Male
  Weight: 47.2 kg

DRUGS (12)
  1. CHLORPROMAZINE [Suspect]
     Indication: HICCUPS
     Dosage: 25MG PO EVERY 8 HRS PRN
     Route: 048
     Dates: start: 20081025
  2. AMIKACIN [Concomitant]
  3. AZITHROMYCIN [Concomitant]
  4. BACLOFEN [Concomitant]
  5. CLONAZEPAM [Concomitant]
  6. DAUNORUBICIN [Concomitant]
  7. RITONAVIR [Concomitant]
  8. ETHAMBUTOL HYDROCHLORIDE [Concomitant]
  9. FERROUS SULFATE [Concomitant]
  10. INSULIN ASPART SS [Concomitant]
  11. PANTOPRAZOLE SODIUM [Concomitant]
  12. BACTRIM [Concomitant]

REACTIONS (1)
  - SINUS TACHYCARDIA [None]
